FAERS Safety Report 26077124 (Version 1)
Quarter: 2025Q4

REPORT INFORMATION
  Report Type: Spontaneous
  Country: JP (occurrence: JP)
  Receive Date: 20251121
  Receipt Date: 20251121
  Transmission Date: 20260117
  Serious: Yes (Death, Other)
  Sender: BAUSCH AND LOMB
  Company Number: JP-BAUSCH-BH-2025-019692

PATIENT
  Age: 50 Year
  Sex: Male
  Weight: 87.6 kg

DRUGS (16)
  1. DEMSER [Suspect]
     Active Substance: METYROSINE
     Indication: Phaeochromocytoma
     Dates: start: 202209
  2. DEMSER [Suspect]
     Active Substance: METYROSINE
     Indication: Metastases to bone
  3. DEMSER [Suspect]
     Active Substance: METYROSINE
     Indication: Blood catecholamines increased
     Dates: start: 202304
  4. LUTETIUM OXODOTREOTIDE LU-177 [Suspect]
     Active Substance: LUTETIUM OXODOTREOTIDE LU-177
     Indication: Phaeochromocytoma
     Route: 065
     Dates: start: 2023
  5. IOBENGUANE I-131 [Concomitant]
     Active Substance: IOBENGUANE I-131
     Indication: Phaeochromocytoma
     Dates: start: 202209, end: 202209
  6. DOXAZOSIN [Concomitant]
     Active Substance: DOXAZOSIN MESYLATE
     Indication: Hypertension
  7. DOXAZOSIN [Concomitant]
     Active Substance: DOXAZOSIN MESYLATE
  8. DOXAZOSIN [Concomitant]
     Active Substance: DOXAZOSIN MESYLATE
  9. DOXAZOSIN [Concomitant]
     Active Substance: DOXAZOSIN MESYLATE
  10. DOXAZOSIN [Concomitant]
     Active Substance: DOXAZOSIN MESYLATE
  11. DOXAZOSIN [Concomitant]
     Active Substance: DOXAZOSIN MESYLATE
     Dates: start: 202209
  12. DOXAZOSIN [Concomitant]
     Active Substance: DOXAZOSIN MESYLATE
     Dates: start: 202204
  13. NIFEDIPINE [Concomitant]
     Active Substance: NIFEDIPINE
     Indication: Hypertension
  14. LOXOPROFEN [Concomitant]
     Active Substance: LOXOPROFEN
     Indication: Cancer pain
  15. PREGABALIN [Concomitant]
     Active Substance: PREGABALIN
     Indication: Cancer pain
  16. OXYCODONE [Concomitant]
     Active Substance: OXYCODONE
     Indication: Cancer pain

REACTIONS (2)
  - Pulmonary alveolar haemorrhage [Fatal]
  - Inability to afford medication [Unknown]

NARRATIVE: CASE EVENT DATE: 20230101
